FAERS Safety Report 8676887 (Version 2)
Quarter: 2013Q4

REPORT INFORMATION
  Report Type: Spontaneous
  Country: US (occurrence: US)
  Receive Date: 20120723
  Receipt Date: 20131101
  Transmission Date: 20140711
  Serious: Yes (Hospitalization, Other)
  Sender: FDA-Public Use
  Company Number: US-009507513-1207USA006087

PATIENT
  Age: 70 Year
  Sex: Female

DRUGS (6)
  1. JANUMET [Suspect]
     Indication: TYPE 2 DIABETES MELLITUS
     Dosage: 500MG/50MG, BID
     Route: 048
  2. ASPIRIN [Concomitant]
  3. CALCIUM (UNSPECIFIED) [Concomitant]
  4. VITAMIN D (UNSPECIFIED) [Concomitant]
  5. PROTONIX [Concomitant]
  6. RAMIPRIL [Concomitant]

REACTIONS (1)
  - Pancreatitis [Recovering/Resolving]
